FAERS Safety Report 9905115 (Version 1)
Quarter: 2014Q1

REPORT INFORMATION
  Report Type: Spontaneous
  Country: US (occurrence: None)
  Receive Date: 20140212
  Receipt Date: 20140212
  Transmission Date: 20141002
  Serious: Yes (Other)
  Sender: FDA-Public Use
  Company Number: None

PATIENT
  Sex: Female

DRUGS (13)
  1. CIPROFLOXACIN [Suspect]
     Indication: URINARY TRACT INFECTION
     Route: 048
     Dates: start: 20131229, end: 20140103
  2. BUPROPION XL [Concomitant]
  3. CITALOPRAM HBR [Concomitant]
  4. BUSPIRONE HCL [Concomitant]
  5. EFFEXOR XR [Concomitant]
  6. TRIAMTERENE +HCTZ [Concomitant]
  7. ESTRADIOL [Concomitant]
  8. PRAVASTATIN [Concomitant]
  9. BENAZEPRIL [Concomitant]
  10. ZOLPIDEM [Concomitant]
  11. VITAMIN D3 [Concomitant]
  12. PRESER VISION W/LUTEIN [Concomitant]
  13. GLUCOSAMINE [Concomitant]

REACTIONS (4)
  - Tendon rupture [None]
  - Joint swelling [None]
  - Arthralgia [None]
  - Gait disturbance [None]
